FAERS Safety Report 20289949 (Version 1)
Quarter: 2022Q1

REPORT INFORMATION
  Report Type: Spontaneous
  Country: US (occurrence: None)
  Receive Date: 20220103
  Receipt Date: 20220103
  Transmission Date: 20220423
  Serious: No
  Sender: FDA-Public Use
  Company Number: None

PATIENT
  Age: 54 Year
  Sex: Male

DRUGS (1)
  1. TALTZ [Suspect]
     Active Substance: IXEKIZUMAB
     Indication: Palmoplantar pustulosis
     Dosage: OTHER QUANTITY : 80MG (1 PEN);?FREQUENCY : MONTHLY
     Route: 058
     Dates: start: 202102

REACTIONS (2)
  - Therapy interrupted [None]
  - Infection [None]
